FAERS Safety Report 21780907 (Version 1)
Quarter: 2022Q4

REPORT INFORMATION
  Report Type: Spontaneous
  Country: US (occurrence: None)
  Receive Date: 20221227
  Receipt Date: 20221227
  Transmission Date: 20230112
  Serious: Yes (Other)
  Sender: FDA-Public Use
  Company Number: US-ROCHE-3248369

PATIENT
  Age: 35 Year
  Sex: Male
  Weight: 90 kg

DRUGS (2)
  1. EVRYSDI [Suspect]
     Active Substance: RISDIPLAM
     Indication: Spinal muscular atrophy
     Route: 048
     Dates: start: 20221012
  2. SPINRAZA [Concomitant]
     Active Substance: NUSINERSEN
     Route: 048
     Dates: end: 20220804

REACTIONS (3)
  - Skin irritation [Recovering/Resolving]
  - Pneumonia [Recovered/Resolved]
  - Viral infection [Recovered/Resolved]
